FAERS Safety Report 12366254 (Version 2)
Quarter: 2016Q2

REPORT INFORMATION
  Report Type: Spontaneous
  Country: BR (occurrence: BR)
  Receive Date: 20160513
  Receipt Date: 20160525
  Transmission Date: 20160815
  Serious: Yes (Hospitalization, Other)
  Sender: FDA-Public Use
  Company Number: BR-ELI_LILLY_AND_COMPANY-BR201605001645

PATIENT
  Sex: Female

DRUGS (9)
  1. HUMULIN N [Suspect]
     Active Substance: INSULIN HUMAN
     Dosage: 10 IU, QD
     Route: 058
     Dates: start: 201501
  2. FLUOXETINE [Concomitant]
     Active Substance: FLUOXETINE HYDROCHLORIDE
     Dosage: UNK, UNKNOWN
     Route: 065
  3. HUMULIN R [Suspect]
     Active Substance: INSULIN HUMAN
     Indication: GESTATIONAL DIABETES
     Dosage: UNK, UNKNOWN
     Route: 058
  4. HUMULIN R [Suspect]
     Active Substance: INSULIN HUMAN
     Dosage: 4 IU, OTHER BREAKFAST
     Route: 058
     Dates: start: 201501, end: 20160504
  5. FLUIR [Concomitant]
     Active Substance: FORMOTEROL FUMARATE
     Dosage: UNK, UNKNOWN
     Route: 065
  6. HUMULIN N [Suspect]
     Active Substance: INSULIN HUMAN
     Indication: GESTATIONAL DIABETES
     Dosage: UNK, UNKNOWN
     Route: 058
  7. HUMULIN R [Suspect]
     Active Substance: INSULIN HUMAN
     Dosage: 6 IU, BID AT LUNCH AND DINNER
     Route: 058
     Dates: start: 201501, end: 20160504
  8. VITAMIN D [Concomitant]
     Active Substance: CHOLECALCIFEROL
     Dosage: UNK, WEEKLY (1/W)
     Route: 065
  9. SINVASTATINA [Concomitant]
     Active Substance: SIMVASTATIN
     Dosage: UNK, UNKNOWN
     Route: 065

REACTIONS (12)
  - Malaise [Recovered/Resolved]
  - Pneumonia [Unknown]
  - Oligohydramnios [Unknown]
  - Drug ineffective [Not Recovered/Not Resolved]
  - Diabetes mellitus inadequate control [Unknown]
  - Hypersensitivity [Recovered/Resolved]
  - Injection site pain [Unknown]
  - Somnolence [Recovered/Resolved]
  - Maternal exposure during pregnancy [Unknown]
  - Vitamin D decreased [Unknown]
  - Polyuria [Recovered/Resolved]
  - Injection site bruising [Unknown]
